FAERS Safety Report 17028684 (Version 7)
Quarter: 2023Q2

REPORT INFORMATION
  Report Type: Spontaneous
  Country: AT (occurrence: AT)
  Receive Date: 20191113
  Receipt Date: 20230601
  Transmission Date: 20230722
  Serious: Yes (Death, Other)
  Sender: FDA-Public Use
  Company Number: AT-ABBVIE-19K-009-2999677-00

PATIENT
  Sex: Female

DRUGS (7)
  1. VENETOCLAX [Suspect]
     Active Substance: VENETOCLAX
     Indication: Chronic lymphocytic leukaemia
     Dosage: PATIENT RECEIVED 2 TABLETS IN TOTAL
     Route: 048
     Dates: start: 20191030, end: 20191031
  2. XARELTO [Concomitant]
     Active Substance: RIVAROXABAN
     Indication: Atrial fibrillation
     Dosage: 1-0-0
     Route: 048
  3. EUTHYROX [Concomitant]
     Active Substance: LEVOTHYROXINE SODIUM
     Indication: Hypothyroidism
     Dosage: 1-0-0
     Route: 048
  4. PANTOPRAZOLE SODIUM [Concomitant]
     Active Substance: PANTOPRAZOLE SODIUM
     Indication: Gastrooesophageal reflux disease
     Dosage: 1-0-0
     Route: 048
  5. BLOPRESS 16/12.5MG [Concomitant]
     Indication: Hypertension
     Dosage: 1-0-0, 16MG/12.5MG
     Route: 048
  6. AMLODIPINE BESYLATE [Concomitant]
     Active Substance: AMLODIPINE BESYLATE
     Indication: Hypertension
     Route: 048
  7. ALLOPURINOL [Concomitant]
     Active Substance: ALLOPURINOL
     Indication: Product used for unknown indication

REACTIONS (13)
  - Chronic lymphocytic leukaemia [Fatal]
  - Tumour lysis syndrome [Fatal]
  - Hyperkalaemia [Fatal]
  - Cardiac failure [Fatal]
  - Hypothyroidism [Fatal]
  - Gastrooesophageal reflux disease [Fatal]
  - Chronic kidney disease [Fatal]
  - Lymphadenopathy [Fatal]
  - Atrial fibrillation [Fatal]
  - Hypertension [Fatal]
  - Lymphocyte count increased [Fatal]
  - Arrhythmia [Unknown]
  - Renal failure [Fatal]

NARRATIVE: CASE EVENT DATE: 20190101
